FAERS Safety Report 5978937-1 (Version None)
Quarter: 2008Q4

REPORT INFORMATION
  Report Type: 
  Country: None (occurrence: None)
  Receive Date: 20081204
  Receipt Date: 20080516
  Transmission Date: 20090506
  Serious: No
  Sender: FDA-Public Use
  Company Number: US-ABBOTT-07P-163-0367245-00

PATIENT
  Sex: Male

DRUGS (12)
  1. TRICOR [Suspect]
     Indication: HYPERLIPIDAEMIA
     Dosage: 48 MG DAILY
     Route: 048
     Dates: start: 20060626, end: 20060721
  2. TRICOR [Suspect]
     Indication: HYPERTRIGLYCERIDAEMIA
  3. GEMFIBROZIL [Concomitant]
     Indication: DRUG USE FOR UNKNOWN INDICATION
     Dosage: 1200 MG DAILY, 600MG BID
  4. BACTRIM [Concomitant]
     Indication: DRUG USE FOR UNKNOWN INDICATION
  5. METOPROLOL TARTRATE [Concomitant]
     Indication: DRUG USE FOR UNKNOWN INDICATION
     Dosage: 50 MG, 1/2 TAB BID
  6. DIGOXIN [Concomitant]
     Indication: DRUG USE FOR UNKNOWN INDICATION
     Dosage: 0.25 MG DAILY
  7. EXTENDRYL G [Concomitant]
     Indication: DRUG USE FOR UNKNOWN INDICATION
  8. CEFALEXIN [Concomitant]
     Indication: DRUG USE FOR UNKNOWN INDICATION
  9. TOPRESON [Concomitant]
     Indication: DRUG USE FOR UNKNOWN INDICATION
     Dosage: 50MG 1/2 (UNIT DOSE)
  10. METOPROLOL SUCCINATE [Concomitant]
     Indication: DRUG USE FOR UNKNOWN INDICATION
  11. DREGERCIN [Concomitant]
     Indication: DRUG USE FOR UNKNOWN INDICATION
  12. ANTARON [Concomitant]
     Indication: DRUG USE FOR UNKNOWN INDICATION
     Route: 048

REACTIONS (7)
  - CONSTIPATION [None]
  - ILL-DEFINED DISORDER [None]
  - LACRIMATION INCREASED [None]
  - MUSCLE SPASMS [None]
  - RHINITIS ALLERGIC [None]
  - SEASONAL ALLERGY [None]
  - SNEEZING [None]
